FAERS Safety Report 21445705 (Version 2)
Quarter: 2022Q4

REPORT INFORMATION
  Report Type: Spontaneous
  Country: CA (occurrence: CA)
  Receive Date: 20221012
  Receipt Date: 20221021
  Transmission Date: 20230113
  Serious: No
  Sender: FDA-Public Use
  Company Number: ALC2022CA004652

PATIENT
  Age: 80 Year
  Sex: Female

DRUGS (1)
  1. LUTEIN\MINERALS\VITAMINS\ZEAXANTHIN [Suspect]
     Active Substance: LUTEIN\MINERALS\VITAMINS\ZEAXANTHIN
     Indication: Product used for unknown indication
     Dosage: UNK
     Route: 048

REACTIONS (1)
  - Abdominal pain upper [Recovered/Resolved]
